FAERS Safety Report 8345042 (Version 2)
Quarter: 2014Q2

REPORT INFORMATION
  Report Type: Spontaneous
  Country: CA (occurrence: CA)
  Receive Date: 20120120
  Receipt Date: 20140625
  Transmission Date: 20141212
  Serious: Yes (Other)
  Sender: FDA-Public Use
  Company Number: CA-ELI_LILLY_AND_COMPANY-CA201201002323

PATIENT
  Age: 30 Year
  Sex: Female

DRUGS (4)
  1. ZYPREXA [Suspect]
     Indication: PRODUCT USED FOR UNKNOWN INDICATION
     Dosage: UNK, UNKNOWN
     Route: 065
  2. ZYPREXA [Suspect]
     Dosage: 20 MG, QD
     Route: 065
  3. ABILIFY [Suspect]
     Indication: BIPOLAR DISORDER
     Dosage: UNK, UNKNOWN
     Route: 065
  4. ABILIFY [Suspect]
     Dosage: 7.5 MG, QD
     Route: 048

REACTIONS (5)
  - Agitation [Unknown]
  - Anxiety [Unknown]
  - Bipolar disorder [Unknown]
  - Akathisia [Unknown]
  - Weight increased [Unknown]
